FAERS Safety Report 4331845-4 (Version None)
Quarter: 2004Q2

REPORT INFORMATION
  Report Type: 
  Country: None (occurrence: None)
  Receive Date: 20040405
  Receipt Date: 20031113
  Transmission Date: 20050107
  Serious: No
  Sender: FDA-Public Use
  Company Number: US-GLAXOSMITHKLINE-A0439655A

PATIENT
  Sex: Female

DRUGS (5)
  1. FLOVENT [Suspect]
     Indication: ASTHMA
     Dosage: 2PUFF TWICE PER DAY
     Route: 055
     Dates: start: 20000101
  2. ZYRTEC [Concomitant]
  3. COMBIVENT [Concomitant]
  4. LIPITOR [Concomitant]
  5. SEREVENT [Concomitant]

REACTIONS (1)
  - CANDIDIASIS [None]
